FAERS Safety Report 9857876 (Version 1)
Quarter: 2014Q1

REPORT INFORMATION
  Report Type: Report from Study
  Country: US (occurrence: US)
  Receive Date: 20140131
  Receipt Date: 20140131
  Transmission Date: 20141002
  Serious: Yes (Other)
  Sender: FDA-Public Use
  Company Number: US-ROCHE-1342279

PATIENT
  Age: 73 Year
  Sex: Male
  Weight: 93.07 kg

DRUGS (4)
  1. LUCENTIS [Suspect]
     Indication: AGE-RELATED MACULAR DEGENERATION
     Route: 065
  2. LISINOPRIL [Concomitant]
     Indication: BLOOD PRESSURE
     Dosage: ^FOR YEARS^
     Route: 048
  3. AMLODIPINE [Concomitant]
     Indication: BLOOD PRESSURE
     Dosage: ^6 MONTHS AGO^
     Route: 048
  4. RETINAVITES [Concomitant]
     Indication: MACULAR DEGENERATION
     Route: 048
     Dates: start: 201309

REACTIONS (2)
  - Haemorrhage [Not Recovered/Not Resolved]
  - Drug ineffective [Unknown]
